FAERS Safety Report 9590152 (Version 1)
Quarter: 2013Q4

REPORT INFORMATION
  Report Type: Spontaneous
  Country: US (occurrence: US)
  Receive Date: 20131003
  Receipt Date: 20131003
  Transmission Date: 20140711
  Serious: No
  Sender: FDA-Public Use
  Company Number: US-AMGEN-USASP2012074572

PATIENT
  Age: 66 Year
  Sex: Female
  Weight: 107.94 kg

DRUGS (11)
  1. ENBREL [Suspect]
     Indication: PRODUCT USED FOR UNKNOWN INDICATION
     Dosage: 50 MG, 2 TIMES/WK
     Route: 058
  2. TEVETEN                            /01347302/ [Concomitant]
     Dosage: 400 MG, UNK
  3. SYNTHROID [Concomitant]
     Dosage: 25 MUG, UNK
  4. METFORMIN [Concomitant]
     Dosage: 500 MG, UNK
  5. FOLIC ACID [Concomitant]
     Dosage: 1 MG, UNK
  6. TOPROL [Concomitant]
     Dosage: 25 MG, UNK
  7. CRESTOR [Concomitant]
     Dosage: 5 MG, UNK
  8. MULTIVITAMINS, PLAIN [Concomitant]
     Dosage: UNK
  9. CINNAMON                           /01647501/ [Concomitant]
     Dosage: 500 MG, UNK
  10. ASPIRIN [Concomitant]
     Dosage: 81 MG, UNK
  11. FLAXSEED OIL [Concomitant]
     Dosage: UNK

REACTIONS (2)
  - Nasopharyngitis [Unknown]
  - Dyspnoea [Unknown]
